FAERS Safety Report 11632925 (Version 1)
Quarter: 2015Q4

REPORT INFORMATION
  Report Type: Spontaneous
  Country: US (occurrence: US)
  Receive Date: 20151015
  Receipt Date: 20151015
  Transmission Date: 20160304
  Serious: No
  Sender: FDA-Public Use
  Company Number: US-BAYER-2015-444589

PATIENT
  Age: 65 Year
  Sex: Female
  Weight: 107.48 kg

DRUGS (2)
  1. LEVOTHYROXIN [Concomitant]
     Active Substance: LEVOTHYROXINE
  2. MIRALAX [Suspect]
     Active Substance: POLYETHYLENE GLYCOL 3350
     Indication: CONSTIPATION
     Dosage: 1 DF, QOD
     Route: 048
     Dates: start: 201508

REACTIONS (4)
  - Anxiety [None]
  - Nervousness [None]
  - Product use issue [None]
  - Hyperhidrosis [None]

NARRATIVE: CASE EVENT DATE: 20151012
